FAERS Safety Report 8534892-1 (Version None)
Quarter: 2012Q3

REPORT INFORMATION
  Report Type: 
  Country: None (occurrence: None)
  Receive Date: 20120724
  Receipt Date: 20120711
  Transmission Date: 20120928
  Serious: Yes (Hospitalization, Other)
  Sender: FDA-Public Use
  Company Number: FR-ROCHE-1087279

PATIENT
  Sex: Male
  Weight: 92 kg

DRUGS (8)
  1. OMEPRAZOLE [Concomitant]
     Indication: PROPHYLAXIS AGAINST GASTROINTESTINAL ULCER
     Route: 048
     Dates: start: 20111207
  2. ACTEMRA [Suspect]
     Indication: RHEUMATOID ARTHRITIS
     Route: 042
     Dates: start: 20120130
  3. ACTEMRA [Suspect]
     Dosage: DOSE WAS REDUCED
  4. LAMALINE [Concomitant]
     Indication: RHEUMATOID ARTHRITIS
     Route: 048
     Dates: start: 20111206
  5. ATORVASTATIN [Concomitant]
     Indication: HYPERLIPIDAEMIA
     Route: 048
     Dates: start: 20110706
  6. CLOPIDOGREL BISULFATE AND ASPIRIN [Concomitant]
     Indication: ISCHAEMIA
     Route: 048
     Dates: start: 20110706
  7. OLMESARTAN MEDOXOMIL [Concomitant]
     Indication: HYPERTENSION
     Route: 048
     Dates: start: 20110706
  8. CELECTOL [Concomitant]
     Indication: HYPERTENSION
     Route: 048
     Dates: start: 20110706

REACTIONS (3)
  - PETECHIAE [None]
  - PURPURA [None]
  - LEUKOCYTOCLASTIC VASCULITIS [None]
